FAERS Safety Report 5885782-4 (Version None)
Quarter: 2008Q3

REPORT INFORMATION
  Report Type: 
  Country: None (occurrence: None)
  Receive Date: 20080917
  Receipt Date: 20080904
  Transmission Date: 20090109
  Serious: Yes (Other)
  Sender: FDA-Public Use
  Company Number: DE-RANBAXY-2008RR-17901

PATIENT

DRUGS (2)
  1. CEFACLOR 500MG BASICS KAPSELN [Suspect]
     Indication: SCARLET FEVER
     Dosage: UNK MG, UNK
  2. IBUPROFENE RPG 200MG COMPRIME PELLICULE [Suspect]
     Indication: PAIN

REACTIONS (5)
  - BILIRUBINURIA [None]
  - BLOOD BILIRUBIN INCREASED [None]
  - CHROMATURIA [None]
  - OCULAR ICTERUS [None]
  - TRANSAMINASES INCREASED [None]
